FAERS Safety Report 6545483-6 (Version None)
Quarter: 2010Q1

REPORT INFORMATION
  Report Type: 
  Country: None (occurrence: None)
  Receive Date: 20100121
  Receipt Date: 20100112
  Transmission Date: 20100710
  Serious: Yes (Hospitalization, Other)
  Sender: FDA-Public Use
  Company Number: DE-GENENTECH-295679

PATIENT
  Sex: Female

DRUGS (4)
  1. RITUXIMAB [Suspect]
     Indication: MALIGNANT LYMPHOID NEOPLASM
     Dosage: 540 MG, X1
     Route: 042
     Dates: start: 20091027
  2. BENDAMUSTINE [Suspect]
     Indication: MALIGNANT LYMPHOID NEOPLASM
     Dosage: 125 MG, X1
     Route: 042
     Dates: start: 20091027
  3. ACICLOVIR [Concomitant]
     Indication: DRUG USE FOR UNKNOWN INDICATION
     Dosage: 400 UNK, QID
     Dates: start: 20091206, end: 20091209
  4. KLACID [Concomitant]
     Indication: DRUG USE FOR UNKNOWN INDICATION
     Dosage: 500 UNK, BID
     Dates: start: 20091206, end: 20091209

REACTIONS (5)
  - BRONCHOPULMONARY ASPERGILLOSIS [None]
  - CARDIAC FAILURE [None]
  - LARGE INTESTINE PERFORATION [None]
  - PNEUMOCYSTIS JIROVECI PNEUMONIA [None]
  - PNEUMONIA [None]
